FAERS Safety Report 19617563 (Version 1)
Quarter: 2021Q3

REPORT INFORMATION
  Report Type: Spontaneous
  Country: NL (occurrence: NL)
  Receive Date: 20210728
  Receipt Date: 20210728
  Transmission Date: 20211014
  Serious: Yes (Other)
  Sender: FDA-Public Use
  Company Number: NL-AUROBINDO-AUR-APL-2021-032283

PATIENT
  Sex: Female
  Weight: 66 kg

DRUGS (1)
  1. LEVONORGESTREL+ETHINYLESTRADIOL 100+20 MICROGRAM FILM COATED TABLETS [Suspect]
     Active Substance: ETHINYL ESTRADIOL\LEVONORGESTREL
     Indication: MENSTRUAL DISCOMFORT
     Dosage: 1 DOSAGE FORM (1 X PER DAY 1 PIECE, WITH THE EXCEPTION OF THE STOP WEEK)
     Route: 065
     Dates: start: 201107, end: 20150501

REACTIONS (3)
  - Psychiatric symptom [Recovered/Resolved]
  - Suicidal ideation [Recovered/Resolved]
  - Depressed mood [Recovered/Resolved]
